FAERS Safety Report 8967066 (Version 2)
Quarter: 2013Q1

REPORT INFORMATION
  Report Type: Report from Study
  Country: US (occurrence: US)
  Receive Date: 20121214
  Receipt Date: 20130228
  Transmission Date: 20140127
  Serious: Yes (Hospitalization)
  Sender: FDA-Public Use
  Company Number: US-ABBOTT-12P-163-1017788-00

PATIENT
  Age: 54 Year
  Sex: Female
  Weight: 95.34 kg

DRUGS (13)
  1. HUMIRA [Suspect]
     Indication: CROHN^S DISEASE
  2. GABAPENTIN [Concomitant]
     Indication: NEUROPATHY PERIPHERAL
  3. IRON SULFATE [Concomitant]
     Indication: ANAEMIA
  4. JANUVIA [Concomitant]
     Indication: DIABETES MELLITUS
  5. METFORMIN [Concomitant]
     Indication: DIABETES MELLITUS
  6. PRAVACHOL [Concomitant]
     Indication: HYPERLIPIDAEMIA
  7. PRILOSEC [Concomitant]
     Indication: GASTROOESOPHAGEAL REFLUX DISEASE
  8. DIAZIDE [Concomitant]
     Indication: BLOOD PRESSURE
  9. MAVIK [Concomitant]
     Indication: BLOOD PRESSURE
  10. PHENERGAN [Concomitant]
     Indication: NAUSEA
  11. RELAFEN [Concomitant]
     Indication: ANTIINFLAMMATORY THERAPY
  12. PROAIR [Concomitant]
     Indication: ASTHMA
  13. NORCO [Concomitant]
     Indication: ARTHRALGIA

REACTIONS (3)
  - Transient ischaemic attack [Recovered/Resolved with Sequelae]
  - Hospitalisation [Unknown]
  - Asthenia [Unknown]
